FAERS Safety Report 19897188 (Version 1)
Quarter: 2021Q3

REPORT INFORMATION
  Report Type: Spontaneous
  Country: US (occurrence: US)
  Receive Date: 20210930
  Receipt Date: 20210930
  Transmission Date: 20211014
  Serious: No
  Sender: FDA-Public Use
  Company Number: US-AUROBINDO-AUR-APL-2021-027650

PATIENT
  Age: 68 Year
  Sex: Female
  Weight: 47 kg

DRUGS (1)
  1. SUMATRIPTAN TABLETS 100MG [Suspect]
     Active Substance: SUMATRIPTAN
     Indication: MIGRAINE
     Dosage: 100 MILLIGRAM
     Route: 048
     Dates: start: 20210323, end: 20210614

REACTIONS (1)
  - Drug ineffective [Unknown]
